FAERS Safety Report 6326666-7 (Version None)
Quarter: 2009Q3

REPORT INFORMATION
  Report Type: 
  Country: None (occurrence: None)
  Receive Date: 20090825
  Receipt Date: 20090812
  Transmission Date: 20100115
  Serious: Yes (Other)
  Sender: FDA-Public Use
  Company Number: NO-PFIZER INC-2009253440

PATIENT

DRUGS (2)
  1. ZOLOFT [Suspect]
     Dosage: 25 MG, UNK
     Route: 050
  2. ABERELA [Concomitant]
     Route: 050

REACTIONS (1)
  - ABORTION SPONTANEOUS [None]
